FAERS Safety Report 6780334-6 (Version None)
Quarter: 2010Q2

REPORT INFORMATION
  Report Type: 
  Country: None (occurrence: None)
  Receive Date: 20100618
  Receipt Date: 20100611
  Transmission Date: 20101027
  Serious: Yes (Hospitalization, Other)
  Sender: FDA-Public Use
  Company Number: US-AMGEN-QUU401409

PATIENT
  Sex: Male

DRUGS (10)
  1. ENBREL [Suspect]
     Indication: RHEUMATOID ARTHRITIS
     Route: 058
  2. RISPERDAL [Suspect]
     Indication: DRUG USE FOR UNKNOWN INDICATION
  3. WELLBUTRIN [Concomitant]
     Route: 048
  4. DEPAKOTE [Concomitant]
     Route: 048
  5. METOPROLOL TARTRATE [Concomitant]
     Route: 048
  6. FERROUS SULFATE TAB [Concomitant]
     Route: 048
  7. ZOCOR [Concomitant]
     Route: 048
  8. LACTULOSE [Concomitant]
     Route: 048
  9. LANTUS [Concomitant]
     Route: 058
  10. PRILOSEC [Concomitant]
     Route: 048

REACTIONS (8)
  - ABASIA [None]
  - ABDOMINAL PAIN [None]
  - BALANCE DISORDER [None]
  - CHOLECYSTITIS CHRONIC [None]
  - FALL [None]
  - FOREIGN BODY [None]
  - MENTAL DISORDER [None]
  - PARKINSONISM [None]
